FAERS Safety Report 8623594-9 (Version None)
Quarter: 2012Q3

REPORT INFORMATION
  Report Type: 
  Country: None (occurrence: None)
  Receive Date: 20120827
  Receipt Date: 20120817
  Transmission Date: 20120928
  Serious: Yes (Other)
  Sender: FDA-Public Use
  Company Number: US-ASTELLAS-2012US007165

PATIENT
  Sex: Male
  Weight: 63 kg

DRUGS (9)
  1. SODIUM BICARBONATE [Concomitant]
     Indication: PRODUCT USED FOR UNKNOWN INDICATION
     Dosage: 3 G, UID/QD
     Route: 048
     Dates: start: 20031208
  2. AMLODIPINE [Concomitant]
     Indication: HYPERTENSION
     Dosage: 5 MG, UID/QD
     Route: 048
     Dates: start: 20110101
  3. PROGRAF [Suspect]
     Indication: PANCREAS TRANSPLANT
  4. RAPAMUNE [Concomitant]
     Indication: RENAL AND PANCREAS TRANSPLANT
     Dosage: 5 MG, UID/QD
     Route: 048
     Dates: start: 20031208
  5. PROGRAF [Suspect]
     Indication: RENAL TRANSPLANT
     Dosage: 2 MG, BID
     Route: 048
     Dates: start: 20031208
  6. ATENOLOL [Concomitant]
     Indication: HYPERTENSION
     Dosage: 50 MG, UID/QD
     Route: 048
     Dates: start: 20090101
  7. CALCITRIOL [Concomitant]
     Indication: BLOOD CALCIUM
     Dosage: 0.25 UG, UID/QD
     Route: 065
     Dates: start: 20031208
  8. PROMETHAZINE [Concomitant]
     Indication: NAUSEA
     Dosage: 25 MG, TID
     Route: 048
     Dates: start: 20080101
  9. OXYCODONE HCL [Concomitant]
     Indication: PAIN
     Dosage: 30 MG, QID
     Route: 048
     Dates: start: 20100101

REACTIONS (2)
  - DIALYSIS [None]
  - OFF LABEL USE [None]
